FAERS Safety Report 5245189-X (Version None)
Quarter: 2007Q1

REPORT INFORMATION
  Report Type: 
  Country: None (occurrence: None)
  Receive Date: 20070223
  Receipt Date: 20070221
  Transmission Date: 20070707
  Serious: Yes (Hospitalization)
  Sender: FDA-Public Use
  Company Number: 2006PK02686

PATIENT
  Age: 12834 Day
  Sex: Male
  Weight: 69 kg

DRUGS (5)
  1. SEROQUEL [Suspect]
     Indication: SCHIZOPHRENIA, PARANOID TYPE
     Route: 048
     Dates: start: 20060811, end: 20061213
  2. SEROQUEL [Suspect]
     Route: 048
     Dates: start: 20061214, end: 20061218
  3. SEROQUEL [Suspect]
     Dosage: 800-300 MG
     Route: 048
     Dates: start: 20061219, end: 20061222
  4. ABILIFY [Concomitant]
     Indication: SCHIZOPHRENIA, PARANOID TYPE
     Dosage: 5 T0 30 MG
     Route: 048
     Dates: start: 20061223, end: 20070108
  5. ABILIFY [Concomitant]
     Dosage: 5 T0 30 MG
     Route: 048
     Dates: start: 20070109

REACTIONS (3)
  - LEUKOPENIA [None]
  - NEUTROPENIA [None]
  - TINNITUS [None]
